FAERS Safety Report 23750123 (Version 1)
Quarter: 2024Q2

REPORT INFORMATION
  Report Type: Spontaneous
  Country: GB (occurrence: GB)
  Receive Date: 20240417
  Receipt Date: 20240417
  Transmission Date: 20240716
  Serious: Yes (Other)
  Sender: FDA-Public Use
  Company Number: None

PATIENT

DRUGS (11)
  1. ATORVASTATIN [Suspect]
     Active Substance: ATORVASTATIN
     Indication: Ill-defined disorder
     Route: 065
     Dates: start: 20240403
  2. ATENOLOL [Concomitant]
     Active Substance: ATENOLOL
     Indication: Ill-defined disorder
     Dosage: TAKE ONE DAILY
     Route: 065
     Dates: start: 20230427, end: 20240227
  3. FLUTICASONE FUROATE [Concomitant]
     Active Substance: FLUTICASONE FUROATE
     Indication: Ill-defined disorder
     Dosage: TWO PUFFS DAILY BOTH NOSTRILS
     Route: 065
     Dates: start: 20230427, end: 20240323
  4. BISOPROLOL [Concomitant]
     Active Substance: BISOPROLOL\BISOPROLOL FUMARATE
     Indication: Ill-defined disorder
     Dosage: TAKE ONE DAILY
     Route: 065
     Dates: start: 20240227
  5. CALCITRIOL [Concomitant]
     Active Substance: CALCITRIOL
     Indication: Ill-defined disorder
     Dosage: 1 TO BE TAKEN TWICE DAILY
     Route: 065
     Dates: start: 20230427
  6. COCODAMOL [Concomitant]
     Active Substance: ACETAMINOPHEN\CODEINE PHOSPHATE
     Indication: Ill-defined disorder
     Dosage: TAKE 1 OR 2 UP TO 4 TIMES/DAY MAXIMUM 8 TABLE...
     Route: 065
     Dates: start: 20230427
  7. DIAZEPAM [Concomitant]
     Active Substance: DIAZEPAM
     Indication: Ill-defined disorder
     Dosage: 1 TO BE TAKEN THREE TIMES DAILY
     Route: 065
     Dates: start: 20230427
  8. FUROSEMIDE [Concomitant]
     Active Substance: FUROSEMIDE
     Indication: Ill-defined disorder
     Dosage: TAKE ONE EACH MORNING
     Route: 065
     Dates: start: 20230427
  9. LACTULOSE [Concomitant]
     Active Substance: LACTULOSE
     Indication: Constipation
     Dosage: 15ML TWICE DAILY FOR CONSTIPATION OR AS DIRECTE...
     Route: 065
     Dates: start: 20230427
  10. OMEPRAZOLE [Concomitant]
     Active Substance: OMEPRAZOLE
     Indication: Ill-defined disorder
     Dosage: TAKE ONE DAILY TWICE DAILY 30 MINUTES BEFORE FOOD
     Route: 065
     Dates: start: 20230427
  11. SODIUM ALGINATE [Concomitant]
     Active Substance: SODIUM ALGINATE
     Indication: Ill-defined disorder
     Dosage: 5ML TO BE TAKEN FOUR TIMES DAILY WHEN REQUIRED
     Route: 065
     Dates: start: 20230427

REACTIONS (2)
  - Pain [Recovered/Resolved]
  - Myalgia [Recovered/Resolved]

NARRATIVE: CASE EVENT DATE: 20240403
